FAERS Safety Report 18530728 (Version 1)
Quarter: 2020Q4

REPORT INFORMATION
  Report Type: Report from Study
  Country: None (occurrence: CA)
  Receive Date: 20201121
  Receipt Date: 20201121
  Transmission Date: 20210114
  Serious: Yes (Other)
  Sender: FDA-Public Use
  Company Number: CA-ABBVIE-20K-028-3655884-00

PATIENT
  Age: 64 Year
  Sex: Male

DRUGS (1)
  1. HUMIRA [Suspect]
     Active Substance: ADALIMUMAB
     Indication: ANKYLOSING SPONDYLITIS
     Route: 058
     Dates: start: 20201015, end: 20201112

REACTIONS (3)
  - Ear infection [Not Recovered/Not Resolved]
  - Deafness transitory [Unknown]
  - Ear procedural complication [Unknown]

NARRATIVE: CASE EVENT DATE: 20201107
